FAERS Safety Report 5143497-4 (Version None)
Quarter: 2006Q4

REPORT INFORMATION
  Report Type: 
  Country: None (occurrence: None)
  Receive Date: 20061103
  Receipt Date: 20061023
  Transmission Date: 20070319
  Serious: Yes (Hospitalization)
  Sender: FDA-Public Use
  Company Number: FR-GLAXOSMITHKLINE-B0444311A

PATIENT
  Age: 4 Year
  Sex: Male

DRUGS (1)
  1. ZOVIRAX [Suspect]
     Indication: HERPES ZOSTER
     Dosage: 800MG SEE DOSAGE TEXT
     Route: 048
     Dates: start: 20061020

REACTIONS (3)
  - ABNORMAL BEHAVIOUR [None]
  - DYSKINESIA [None]
  - MOANING [None]
